FAERS Safety Report 16430300 (Version 1)
Quarter: 2019Q2

REPORT INFORMATION
  Report Type: Spontaneous
  Country: NL (occurrence: NL)
  Receive Date: 20190614
  Receipt Date: 20190614
  Transmission Date: 20190711
  Serious: Yes (Other)
  Sender: FDA-Public Use
  Company Number: NL-ACCORD-132735

PATIENT
  Age: 72 Year
  Sex: Female

DRUGS (1)
  1. CARBIDOPA/LEVODOPA [Suspect]
     Active Substance: CARBIDOPA\LEVODOPA
     Indication: PARKINSON^S DISEASE
     Route: 048

REACTIONS (7)
  - Drug ineffective [Unknown]
  - Slow response to stimuli [Unknown]
  - Incorrect route of product administration [Unknown]
  - Therapeutic response decreased [Unknown]
  - Speech disorder [Unknown]
  - Dysphagia [Unknown]
  - Movement disorder [Recovering/Resolving]
